FAERS Safety Report 5630637-3 (Version None)
Quarter: 2008Q1

REPORT INFORMATION
  Report Type: 
  Country: None (occurrence: None)
  Receive Date: 20080212
  Receipt Date: 20080126
  Transmission Date: 20080703
  Serious: Yes (Hospitalization)
  Sender: FDA-Public Use
  Company Number: 2008AP000335

PATIENT
  Age: 10 Year
  Sex: Male

DRUGS (3)
  1. CEFTRIAXONE [Suspect]
     Indication: ABSCESS
     Dosage: 1 GM; BID; IV
     Route: 042
  2. CLINDAMYCIN HCL [Concomitant]
  3. CEPHALEXIN [Concomitant]

REACTIONS (12)
  - BLOOD LACTATE DEHYDROGENASE INCREASED [None]
  - BLOOD PHOSPHORUS INCREASED [None]
  - HAEMOLYSIS [None]
  - HEART RATE INCREASED [None]
  - MENTAL IMPAIRMENT [None]
  - PERITONEAL DIALYSIS [None]
  - PRURITUS GENERALISED [None]
  - RASH MACULO-PAPULAR [None]
  - RENAL FAILURE ACUTE [None]
  - RENAL TUBULAR NECROSIS [None]
  - SOMNOLENCE [None]
  - SWELLING FACE [None]
